FAERS Safety Report 15990316 (Version 1)
Quarter: 2019Q1

REPORT INFORMATION
  Report Type: Spontaneous
  Country: US (occurrence: US)
  Receive Date: 20190221
  Receipt Date: 20190221
  Transmission Date: 20190418
  Serious: No
  Sender: FDA-Public Use
  Company Number: US-ALLERGAN-1829670US

PATIENT
  Age: 60 Year
  Sex: Female
  Weight: 58.97 kg

DRUGS (6)
  1. FML [Suspect]
     Active Substance: FLUOROMETHOLONE
     Dosage: 2 GTT, QD
     Route: 047
     Dates: start: 201805
  2. VENTOLIN [Concomitant]
     Active Substance: ALBUTEROL SULFATE
     Indication: PRODUCT USED FOR UNKNOWN INDICATION
     Dosage: 3 TIMES PER WEEK
     Route: 055
  3. VITAMINS [Concomitant]
     Active Substance: VITAMINS
     Indication: PRODUCT USED FOR UNKNOWN INDICATION
     Dosage: UNK
     Route: 065
  4. FML [Suspect]
     Active Substance: FLUOROMETHOLONE
     Dosage: 2 GTT, QD
     Route: 047
     Dates: start: 201805
  5. FML [Suspect]
     Active Substance: FLUOROMETHOLONE
     Indication: BLEPHARITIS
     Dosage: 2 GTT, QD
     Route: 047
     Dates: start: 200306
  6. DOXYCYCLINE. [Concomitant]
     Active Substance: DOXYCYCLINE
     Indication: PRODUCT USED FOR UNKNOWN INDICATION
     Dosage: UNK
     Route: 065

REACTIONS (7)
  - Product physical consistency issue [Unknown]
  - Eye irritation [Not Recovered/Not Resolved]
  - Off label use [Unknown]
  - Liquid product physical issue [Unknown]
  - Eye swelling [Not Recovered/Not Resolved]
  - Ocular hyperaemia [Not Recovered/Not Resolved]
  - Poor quality product administered [Unknown]

NARRATIVE: CASE EVENT DATE: 201805
